FAERS Safety Report 7726318-2 (Version None)
Quarter: 2011Q3

REPORT INFORMATION
  Report Type: 
  Country: None (occurrence: None)
  Receive Date: 20110902
  Receipt Date: 20110824
  Transmission Date: 20111222
  Serious: Yes (Other)
  Sender: FDA-Public Use
  Company Number: GB-ROCHE-793959

PATIENT
  Sex: Female

DRUGS (2)
  1. NORDETTE-28 [Concomitant]
     Indication: CONTRACEPTION
     Route: 048
     Dates: start: 20110404, end: 20110525
  2. ISOTRETINOIN [Suspect]
     Indication: ACNE
     Route: 048
     Dates: start: 20110504, end: 20110525

REACTIONS (1)
  - ABORTION SPONTANEOUS [None]
